FAERS Safety Report 7900885-8 (Version None)
Quarter: 2011Q4

REPORT INFORMATION
  Report Type: 
  Country: None (occurrence: None)
  Receive Date: 20111108
  Receipt Date: 20111027
  Transmission Date: 20120403
  Serious: Yes (Other)
  Sender: FDA-Public Use
  Company Number: US-BAYER-2011-081753

PATIENT
  Age: 45 Year
  Sex: Female
  Weight: 77 kg

DRUGS (19)
  1. FLOVENT [Concomitant]
     Route: 055
  2. ACIPHEX [Concomitant]
     Dosage: 20 MG, UNK
     Route: 048
     Dates: start: 20080703
  3. FLUOXETINE HYDROCHLORIDE [Concomitant]
     Dosage: 40 MG, UNK
     Route: 048
     Dates: start: 20080712
  4. CELEXA [Concomitant]
     Indication: DEPRESSION
  5. YAZ [Suspect]
     Indication: MOOD ALTERED
  6. YASMIN [Suspect]
     Indication: MOOD ALTERED
  7. DROSPIRENONE AND ETHINYL ESTRADIOL [Suspect]
     Indication: MENSTRUAL CYCLE MANAGEMENT
  8. SINGULAIR [Concomitant]
     Dosage: 10 MG, UNK
     Route: 048
  9. AMBIEN [Concomitant]
     Indication: SLEEP DISORDER
     Dosage: 6.25 MG, UNK
     Route: 048
     Dates: start: 20080718
  10. AVIANE-28 [Concomitant]
  11. YASMIN [Suspect]
     Indication: CONTRACEPTION
     Dosage: UNK
     Dates: start: 20070801, end: 20080601
  12. YAZ [Suspect]
     Indication: CONTRACEPTION
     Dosage: UNK
     Dates: start: 20070501, end: 20081001
  13. ACYCLOVIR [Concomitant]
     Indication: HERPES VIRUS INFECTION
     Dosage: UNK
     Route: 048
     Dates: start: 19890101
  14. CELEXA [Concomitant]
     Indication: ANXIETY
  15. NORTRIPTYLINE HCL [Concomitant]
     Indication: ANTIDEPRESSANT THERAPY
  16. YAZ [Suspect]
     Indication: MENSTRUAL CYCLE MANAGEMENT
  17. YASMIN [Suspect]
     Indication: MENSTRUAL CYCLE MANAGEMENT
  18. DROSPIRENONE AND ETHINYL ESTRADIOL [Suspect]
     Indication: CONTRACEPTION
     Dosage: UNK
     Dates: start: 20080701, end: 20080901
  19. DROSPIRENONE AND ETHINYL ESTRADIOL [Suspect]
     Indication: MOOD ALTERED

REACTIONS (11)
  - CEREBRAL THROMBOSIS [None]
  - INJURY [None]
  - MENTAL DISORDER [None]
  - GALLBLADDER INJURY [None]
  - CHEST PAIN [None]
  - LEARNING DISORDER [None]
  - COGNITIVE DISORDER [None]
  - CHOLECYSTITIS CHRONIC [None]
  - PAIN [None]
  - CEREBROVASCULAR ACCIDENT [None]
  - AMNESIA [None]
